FAERS Safety Report 5951341-8 (Version None)
Quarter: 2008Q4

REPORT INFORMATION
  Report Type: 
  Country: None (occurrence: None)
  Receive Date: 20081111
  Receipt Date: 20081111
  Transmission Date: 20090506
  Serious: Yes (Life-Threatening, Other)
  Sender: FDA-Public Use
  Company Number: None

PATIENT
  Age: 50 Year
  Sex: Female
  Weight: 43.5453 kg

DRUGS (2)
  1. DURAGESIC-100 [Suspect]
     Indication: PAIN
     Dosage: 1 PATCH EVERY 48 HOURS TRANSDERMAL
     Route: 062
  2. DURAGESIC-100 [Suspect]
     Indication: SPINAL DISORDER
     Dosage: 1 PATCH EVERY 48 HOURS TRANSDERMAL
     Route: 062

REACTIONS (18)
  - AGITATION [None]
  - DEPRESSION [None]
  - DERMATITIS BULLOUS [None]
  - DEVICE FAILURE [None]
  - INFLUENZA LIKE ILLNESS [None]
  - INSOMNIA [None]
  - IRRITABILITY [None]
  - MEMORY IMPAIRMENT [None]
  - MOOD SWINGS [None]
  - OVERDOSE [None]
  - PERSONALITY CHANGE [None]
  - PRURITUS [None]
  - RESPIRATORY DEPRESSION [None]
  - SCAR [None]
  - SKIN BURNING SENSATION [None]
  - WEIGHT DECREASED [None]
  - WHEEZING [None]
  - WITHDRAWAL SYNDROME [None]
